FAERS Safety Report 21967405 (Version 1)
Quarter: 2023Q1

REPORT INFORMATION
  Report Type: Spontaneous
  Country: None (occurrence: US)
  Receive Date: 20230208
  Receipt Date: 20230208
  Transmission Date: 20230417
  Serious: No
  Sender: FDA-Public Use
  Company Number: US-Mission Pharmacal Company-2137667

PATIENT
  Age: 62 Year
  Sex: Male

DRUGS (1)
  1. THIOLA EC [Suspect]
     Active Substance: TIOPRONIN
     Indication: Nephrolithiasis
     Route: 048
     Dates: start: 20200121

REACTIONS (2)
  - Chest pain [Unknown]
  - Weight increased [Unknown]
